FAERS Safety Report 8720344 (Version 2)
Quarter: 2012Q4

REPORT INFORMATION
  Report Type: 
  Country: CA (occurrence: CA)
  Receive Date: 20120813
  Receipt Date: 20121001
  Transmission Date: 20130627
  Serious: Yes (Life-Threatening, Hospitalization, Other)
  Sender: FDA-Public Use
  Company Number: CA-ELI_LILLY_AND_COMPANY-CA201208002837

PATIENT
  Age: 53 Year
  Sex: Female

DRUGS (20)
  1. FORTEO [Suspect]
     Indication: OSTEOPOROSIS
     Dosage: 20 ug, qd
     Route: 058
     Dates: start: 20101004, end: 20120719
  2. FORTEO [Suspect]
     Dosage: 20 ug, qd
     Route: 058
     Dates: start: 201208
  3. PREDNISONE [Concomitant]
     Dosage: UNK
  4. LEVOTHYROXINE [Concomitant]
     Dosage: UNK
  5. GABAPENTIN [Concomitant]
  6. ZAROXOLYN [Concomitant]
     Dosage: UNK
  7. FUROSEMIDE [Concomitant]
  8. PANTOPRAZOLE [Concomitant]
  9. K-DUR [Concomitant]
  10. PLAQUENIL [Concomitant]
  11. TEGRETOL [Concomitant]
  12. BETAHISTINE [Concomitant]
  13. ENTROPHEN [Concomitant]
     Dosage: UNK
  14. PREDNISOLONE [Concomitant]
  15. MULTIVITAMIN [Concomitant]
  16. ESTRADOT [Concomitant]
  17. NOVOLIN-TORONTO [Concomitant]
  18. CEPHALEXIN [Concomitant]
  19. SULFATRIM [Concomitant]
  20. FLUCONAZOLE [Concomitant]

REACTIONS (8)
  - Multi-organ failure [Not Recovered/Not Resolved]
  - Pneumonia [Not Recovered/Not Resolved]
  - Pancreatitis acute [Not Recovered/Not Resolved]
  - Cellulitis [Not Recovered/Not Resolved]
  - Encephalitis [Not Recovered/Not Resolved]
  - Clostridium difficile infection [Not Recovered/Not Resolved]
  - Pneumonia legionella [Not Recovered/Not Resolved]
  - Memory impairment [Not Recovered/Not Resolved]
